FAERS Safety Report 5660577-5 (Version None)
Quarter: 2008Q1

REPORT INFORMATION
  Report Type: 
  Country: None (occurrence: None)
  Receive Date: 20080311
  Receipt Date: 20080211
  Transmission Date: 20080703
  Serious: Yes (Other)
  Sender: FDA-Public Use
  Company Number: US-BAYER-200713988BCC

PATIENT
  Age: 44 Year
  Sex: Female
  Weight: 82 kg

DRUGS (3)
  1. ALEVE [Suspect]
     Indication: DRUG USE FOR UNKNOWN INDICATION
     Dosage: TOTAL DAILY DOSE: 440 MG  UNIT DOSE: 220 MG
     Route: 048
     Dates: start: 20071202, end: 20071202
  2. CITALOPRAM [Concomitant]
  3. CITALOPRAM [Concomitant]
     Dosage: TOTAL DAILY DOSE: 40 MG
     Route: 048

REACTIONS (7)
  - ERYTHEMA [None]
  - HYPERSENSITIVITY [None]
  - PHARYNGEAL OEDEMA [None]
  - PRURITUS [None]
  - PYREXIA [None]
  - SKIN IRRITATION [None]
  - URTICARIA [None]
